FAERS Safety Report 26041159 (Version 1)
Quarter: 2025Q4

REPORT INFORMATION
  Report Type: Spontaneous
  Country: US (occurrence: None)
  Receive Date: 20251113
  Receipt Date: 20251113
  Transmission Date: 20260117
  Serious: Yes (Death)
  Sender: FDA-CTU
  Company Number: None

PATIENT
  Sex: Female

DRUGS (11)
  1. LENALIDOMIDE [Suspect]
     Active Substance: LENALIDOMIDE
     Indication: Plasma cell myeloma
     Dosage: FREQUENCY : DAILY;?FREQ: TAKE 1 CAPSULE BY MOUTH EVERY DAY FOR 14 DAYS, THEN OFF 1 WEEK?
     Route: 048
     Dates: start: 20250916
  2. ACYCLOVIR [Concomitant]
     Active Substance: ACYCLOVIR
  3. ALLERGY TAB 4MG [Concomitant]
  4. ANASTROZOLE [Concomitant]
     Active Substance: ANASTROZOLE
  5. COCONUT OIL CAP 1000MG [Concomitant]
  6. COMPAZINE TAB 10MG [Concomitant]
  7. CYCLOSPORINE EMU 0.05% OP [Concomitant]
  8. DEXAMETHASONE [Concomitant]
     Active Substance: DEXAMETHASONE
  9. GABAPENTIN [Concomitant]
     Active Substance: GABAPENTIN
  10. KETOROLAC SOL 0.5%, OP [Concomitant]
  11. LEVOTHYROXIN TAB 75MCG [Concomitant]

REACTIONS (1)
  - Death [None]
